FAERS Safety Report 16392262 (Version 2)
Quarter: 2019Q4

REPORT INFORMATION
  Report Type: Spontaneous
  Country: US (occurrence: US)
  Receive Date: 20190605
  Receipt Date: 20191206
  Transmission Date: 20200122
  Serious: No
  Sender: FDA-Public Use
  Company Number: US-ROCHE-2267406

PATIENT
  Sex: Male

DRUGS (1)
  1. OCREVUS [Suspect]
     Active Substance: OCRELIZUMAB
     Indication: PRODUCT USED FOR UNKNOWN INDICATION
     Dosage: 2 INFUSIONS?2ND ROUND
     Route: 065

REACTIONS (4)
  - Upper respiratory tract congestion [Unknown]
  - Insomnia [Unknown]
  - Flushing [Unknown]
  - Pruritus [Unknown]
